FAERS Safety Report 8453565-7 (Version None)
Quarter: 2012Q2

REPORT INFORMATION
  Report Type: 
  Country: None (occurrence: None)
  Receive Date: 20120614
  Receipt Date: 20120529
  Transmission Date: 20120825
  Serious: Yes (Other)
  Sender: FDA-Public Use
  Company Number: TCI2012A02778

PATIENT
  Age: 71 Year
  Sex: Female

DRUGS (6)
  1. LIPITOR [Concomitant]
  2. INDAPAMIDE [Concomitant]
  3. GLIMICRON (GLICLAZIDE) [Concomitant]
  4. LOSARTAN POTASSIUM [Concomitant]
  5. ACTOS [Suspect]
     Indication: DIABETES MELLITUS
     Dosage: 15 MG (15 MG, 1 D) PER ORAL
     Route: 048
     Dates: start: 20020101, end: 20110701
  6. NORVASC [Concomitant]

REACTIONS (2)
  - URETERIC CANCER [None]
  - BLADDER CANCER [None]
